FAERS Safety Report 20476244 (Version 1)
Quarter: 2022Q1

REPORT INFORMATION
  Report Type: Report from Study
  Country: US (occurrence: US)
  Receive Date: 20220215
  Receipt Date: 20220215
  Transmission Date: 20220423
  Serious: Yes (Death)
  Sender: FDA-Public Use
  Company Number: US-UCBSA-2022005787

PATIENT
  Age: 60 Year
  Sex: Male

DRUGS (5)
  1. LACOSAMIDE [Suspect]
     Active Substance: LACOSAMIDE
     Indication: Seizure
     Dosage: 350 MILLIGRAM, 2X/DAY (BID)
  2. LACOSAMIDE [Suspect]
     Active Substance: LACOSAMIDE
     Dosage: 200 MILLIGRAM, 1.5 TABLETS,2X/DAY (BID)
     Dates: end: 20220207
  3. BRIVIACT [Suspect]
     Active Substance: BRIVARACETAM
     Indication: Seizure
     Dosage: 100 MILLIGRAM, 2X/DAY (BID)
  4. BRIVIACT [Suspect]
     Active Substance: BRIVARACETAM
     Dosage: SPLITTING OF TABLETS
  5. NAYZILAM [Suspect]
     Active Substance: MIDAZOLAM
     Indication: Product used for unknown indication
     Dosage: 5MG

REACTIONS (6)
  - Death [Fatal]
  - Product availability issue [Unknown]
  - Product distribution issue [Unknown]
  - Therapy interrupted [Unknown]
  - Wrong technique in product usage process [Unknown]
  - Overdose [Unknown]

NARRATIVE: CASE EVENT DATE: 20220207
